FAERS Safety Report 10945891 (Version 1)
Quarter: 2015Q1

REPORT INFORMATION
  Report Type: Spontaneous
  Country: SE (occurrence: SE)
  Receive Date: 20150323
  Receipt Date: 20150323
  Transmission Date: 20150721
  Serious: Yes (Life-Threatening, Hospitalization)
  Sender: FDA-Public Use
  Company Number: SE-PFIZER INC-2015098417

PATIENT
  Age: 31 Year
  Sex: Female

DRUGS (3)
  1. DOLCONTIN [Suspect]
     Active Substance: MORPHINE
     Dosage: 5 MG, 2X/DAY
  2. DOLCONTIN [Suspect]
     Active Substance: MORPHINE
     Indication: SURGERY
     Dosage: 20 MG, UNK
  3. PALEXIA [Suspect]
     Active Substance: TAPENTADOL HYDROCHLORIDE
     Indication: SURGERY
     Dosage: 150 MG, 1X/DAY

REACTIONS (5)
  - Urticaria [Not Recovered/Not Resolved]
  - Dyspnoea [Unknown]
  - Muscle spasms [Not Recovered/Not Resolved]
  - Bladder pain [Not Recovered/Not Resolved]
  - Anaphylactic shock [Unknown]

NARRATIVE: CASE EVENT DATE: 201503
